FAERS Safety Report 9924260 (Version 17)
Quarter: 2015Q3

REPORT INFORMATION
  Report Type: Report from Study
  Country: ES (occurrence: ES)
  Receive Date: 20140226
  Receipt Date: 20150728
  Transmission Date: 20151125
  Serious: Yes (Death, Hospitalization)
  Sender: FDA-Public Use
  Company Number: ES-ROCHE-1352477

PATIENT
  Age: 81 Year
  Sex: Male
  Weight: 74 kg

DRUGS (17)
  1. MEGESTROL ACETATE. [Concomitant]
     Active Substance: MEGESTROL ACETATE
     Indication: HYPEROXIA
     Route: 065
     Dates: start: 20131003
  2. PARACETAMOL [Concomitant]
     Active Substance: ACETAMINOPHEN
     Indication: MUSCLE SPASMS
     Route: 065
     Dates: start: 20131003
  3. REMINYL [Concomitant]
     Active Substance: GALANTAMINE
     Indication: DEMENTIA ALZHEIMER^S TYPE
     Route: 065
     Dates: start: 20130523
  4. MEGESTROL ACETATE. [Concomitant]
     Active Substance: MEGESTROL ACETATE
     Route: 065
     Dates: start: 20131025
  5. SINTROM [Concomitant]
     Active Substance: ACENOCOUMAROL
     Route: 065
     Dates: start: 200501
  6. FUROSEMIDA [Concomitant]
     Active Substance: FUROSEMIDE
     Indication: CARDIAC FAILURE
     Route: 065
  7. PANTOPRAZOLE SODIUM. [Concomitant]
     Active Substance: PANTOPRAZOLE SODIUM
     Route: 065
     Dates: start: 20130305
  8. UROLOSIN [Concomitant]
     Route: 065
     Dates: start: 20130918
  9. DIGOXINA [Concomitant]
     Active Substance: DIGOXIN
     Indication: CARDIAC FAILURE
     Route: 065
     Dates: start: 20130918
  10. SALBUTAMOL [Concomitant]
     Active Substance: ALBUTEROL
     Indication: EMPHYSEMA
     Route: 065
     Dates: start: 20130918
  11. ALDACTONE (SPAIN) [Concomitant]
     Route: 065
     Dates: start: 20130918
  12. ESPIRONOLACTONA [Concomitant]
     Active Substance: SPIRONOLACTONE
     Indication: CARDIAC FAILURE
     Route: 065
  13. PARACETAMOL [Concomitant]
     Active Substance: ACETAMINOPHEN
     Route: 065
     Dates: start: 20131025
  14. SEGURIL [Concomitant]
     Active Substance: FUROSEMIDE
     Route: 065
     Dates: start: 20130918
  15. VISMODEGIB [Suspect]
     Active Substance: VISMODEGIB
     Indication: BASAL CELL CARCINOMA
     Dosage: MOST RECENT DOSE 11/FEB/2014 PRIOR TO SAE (CARDIORESPIRATORY INSUFFICIENCY ). LAST DOSE PRIOR TO SAE
     Route: 048
     Dates: start: 20130704, end: 20140211
  16. SPIRIVA [Concomitant]
     Active Substance: TIOTROPIUM BROMIDE MONOHYDRATE
     Indication: EMPHYSEMA
     Route: 065
     Dates: start: 20130918
  17. SINTROM [Concomitant]
     Active Substance: ACENOCOUMAROL
     Indication: ATRIAL FIBRILLATION
     Route: 065
     Dates: start: 20130918

REACTIONS (4)
  - Cardiopulmonary failure [Fatal]
  - Bronchitis [Recovered/Resolved]
  - Cardiac failure [Recovered/Resolved with Sequelae]
  - Pneumonia [Recovered/Resolved]

NARRATIVE: CASE EVENT DATE: 20140129
